FAERS Safety Report 16721795 (Version 2)
Quarter: 2019Q3

REPORT INFORMATION
  Report Type: Spontaneous
  Country: FR (occurrence: FR)
  Receive Date: 20190820
  Receipt Date: 20190919
  Transmission Date: 20191005
  Serious: Yes (Other)
  Sender: FDA-Public Use
  Company Number: FR-GLAXOSMITHKLINE-FR2019148290

PATIENT
  Age: 47 Year
  Sex: Female

DRUGS (11)
  1. PARACETAMOL [Suspect]
     Active Substance: ACETAMINOPHEN
     Indication: MIGRAINE
     Dosage: UNK
     Route: 048
     Dates: start: 20190627, end: 20190627
  2. SERETIDE [Concomitant]
     Active Substance: FLUTICASONE PROPIONATE\SALMETEROL XINAFOATE
     Indication: PRODUCT USED FOR UNKNOWN INDICATION
     Dosage: UNK
     Route: 055
  3. FOLIC ACID. [Concomitant]
     Active Substance: FOLIC ACID
     Indication: PRODUCT USED FOR UNKNOWN INDICATION
     Dosage: UNK
     Route: 048
  4. SUMATRIPTAN. [Suspect]
     Active Substance: SUMATRIPTAN
     Indication: MIGRAINE
     Dosage: UNK
     Route: 048
     Dates: start: 20190626, end: 20190627
  5. KETOPROFENE [Suspect]
     Active Substance: KETOPROFEN
     Indication: MIGRAINE
     Dosage: UNK
     Route: 048
     Dates: start: 201906
  6. LARGACTIL [Suspect]
     Active Substance: CHLORPROMAZINE
     Indication: MIGRAINE
     Dosage: UNK
     Route: 048
     Dates: start: 20190628, end: 20190701
  7. DONORMYL (DOXYLAMINE SUCCINATE) [Suspect]
     Active Substance: DOXYLAMINE SUCCINATE
     Indication: INSOMNIA
     Dosage: UNK
     Route: 048
     Dates: start: 20190701, end: 20190701
  8. LEVOTHYROX [Concomitant]
     Active Substance: LEVOTHYROXINE
     Indication: PRODUCT USED FOR UNKNOWN INDICATION
     Dosage: UNK
     Route: 065
  9. CODEINE [Suspect]
     Active Substance: CODEINE
     Indication: MIGRAINE
     Dosage: UNK
     Route: 048
     Dates: start: 20190627, end: 20190627
  10. FUMAFER [Concomitant]
     Active Substance: FERROUS FUMARATE
     Indication: PRODUCT USED FOR UNKNOWN INDICATION
     Dosage: UNK
     Route: 048
  11. PRIMPERAN [Suspect]
     Active Substance: METOCLOPRAMIDE HYDROCHLORIDE
     Indication: VOMITING
     Dosage: UNK
     Route: 048
     Dates: start: 201906

REACTIONS (3)
  - Abortion spontaneous [Recovered/Resolved]
  - Foetal death [Recovered/Resolved]
  - Exposure during pregnancy [Unknown]

NARRATIVE: CASE EVENT DATE: 2019
